FAERS Safety Report 5234093-9 (Version None)
Quarter: 2007Q1

REPORT INFORMATION
  Report Type: 
  Country: None (occurrence: None)
  Receive Date: 20070208
  Receipt Date: 20070130
  Transmission Date: 20070707
  Serious: Yes (Other)
  Sender: FDA-Public Use
  Company Number: US-PFIZER INC-2007008084

PATIENT
  Sex: Female
  Weight: 56.7 kg

DRUGS (7)
  1. CHANTIX [Suspect]
     Indication: SMOKING CESSATION THERAPY
     Route: 048
  2. LORAZEPAM [Concomitant]
  3. VITAMIN CAP [Concomitant]
  4. OSCAL [Concomitant]
  5. TOPROL-XL [Concomitant]
  6. VYTORIN [Concomitant]
     Indication: BLOOD CHOLESTEROL
     Dates: start: 20070126
  7. ALL OTHER THERAPEUTIC PRODUCTS [Concomitant]

REACTIONS (3)
  - ABNORMAL DREAMS [None]
  - FLATULENCE [None]
  - PHARYNGEAL OEDEMA [None]
